FAERS Safety Report 7610591-5 (Version None)
Quarter: 2011Q3

REPORT INFORMATION
  Report Type: 
  Country: None (occurrence: None)
  Receive Date: 20110715
  Receipt Date: 20110711
  Transmission Date: 20111222
  Serious: Yes (Death)
  Sender: FDA-Public Use
  Company Number: US-SANOFI-AVENTIS-2011SA044132

PATIENT
  Age: 85 Year
  Sex: Female

DRUGS (1)
  1. LOVENOX [Suspect]
     Indication: DEEP VEIN THROMBOSIS
     Route: 065
     Dates: end: 20110101

REACTIONS (1)
  - DEATH [None]
